FAERS Safety Report 13297822 (Version 1)
Quarter: 2017Q1

REPORT INFORMATION
  Report Type: Spontaneous
  Country: GB (occurrence: GB)
  Receive Date: 20170306
  Receipt Date: 20170306
  Transmission Date: 20170428
  Serious: Yes (Hospitalization)
  Sender: FDA-Public Use
  Company Number: GB-SA-2017SA034392

PATIENT
  Age: 69 Year
  Sex: Male

DRUGS (1)
  1. BCG FOR IMMUNOTHERAPY [Suspect]
     Active Substance: BACILLUS CALMETTE-GUERIN ANTIGEN, UNSPECIFIED SUBSTRAIN
     Indication: BLADDER CANCER STAGE 0, WITH CANCER IN SITU
     Route: 043

REACTIONS (10)
  - Penis disorder [Unknown]
  - Pneumonitis [Unknown]
  - Granulomatous liver disease [Unknown]
  - Night sweats [Unknown]
  - Pyomyositis [Unknown]
  - Disseminated Bacillus Calmette-Guerin infection [Unknown]
  - Infective aneurysm [Unknown]
  - Escherichia bacteraemia [Unknown]
  - Productive cough [Unknown]
  - Pulmonary mass [Unknown]
